FAERS Safety Report 10512002 (Version 1)
Quarter: 2014Q4

REPORT INFORMATION
  Report Type: Report from Study
  Country: US (occurrence: US)
  Receive Date: 20141010
  Receipt Date: 20141010
  Transmission Date: 20150528
  Serious: Yes (Death, Other)
  Sender: FDA-Public Use
  Company Number: US-JNJFOC-20141000486

PATIENT
  Age: 67 Year
  Sex: Female

DRUGS (2)
  1. DOXIL [Suspect]
     Active Substance: DOXORUBICIN HYDROCHLORIDE
     Indication: OVARIAN CANCER
     Route: 042
  2. AVASTIN [Suspect]
     Active Substance: BEVACIZUMAB
     Indication: OVARIAN CANCER
     Route: 065

REACTIONS (10)
  - Intestinal perforation [Unknown]
  - Asthenia [Unknown]
  - Sepsis [Unknown]
  - Death [Fatal]
  - Metastases to lung [Unknown]
  - Renal failure [Unknown]
  - Immune system disorder [Unknown]
  - Drug ineffective [Unknown]
  - Product quality issue [None]
  - Cardiac failure [Unknown]
